FAERS Safety Report 8045766-7 (Version None)
Quarter: 2012Q1

REPORT INFORMATION
  Report Type: 
  Country: None (occurrence: None)
  Receive Date: 20120113
  Receipt Date: 20120111
  Transmission Date: 20120608
  Serious: Yes (Other)
  Sender: FDA-Public Use
  Company Number: US-BAYER-2011-113981

PATIENT
  Age: 53 Year
  Sex: Female

DRUGS (1)
  1. BETASERON [Suspect]
     Indication: MULTIPLE SCLEROSIS
     Dosage: UNK
     Dates: start: 20080414

REACTIONS (13)
  - MULTIPLE SCLEROSIS RELAPSE [None]
  - ASTHENIA [None]
  - HYPOAESTHESIA [None]
  - SLEEP DISORDER [None]
  - MIDDLE INSOMNIA [None]
  - PAIN [None]
  - HYPERTENSION [None]
  - NEUROPATHY PERIPHERAL [None]
  - ANXIETY [None]
  - FATIGUE [None]
  - STRESS [None]
  - POSITIVE ROMBERGISM [None]
  - DEPRESSION [None]
